FAERS Safety Report 4910373-9 (Version None)
Quarter: 2006Q1

REPORT INFORMATION
  Report Type: 
  Country: None (occurrence: None)
  Receive Date: 20060209
  Receipt Date: 20060126
  Transmission Date: 20060701
  Serious: Yes (Other)
  Sender: FDA-Public Use
  Company Number: DEU-2006-0001948

PATIENT
  Age: 79 Year
  Sex: Female
  Weight: 50 kg

DRUGS (9)
  1. HYDROMORPHONE HCL [Suspect]
     Dosage: 4 MG BID ORAL
     Route: 048
     Dates: start: 20051018, end: 20051024
  2. HYDROMORPHONE HCL [Suspect]
     Dosage: 4 MG BID ORAL
     Route: 048
     Dates: start: 20051025, end: 20051031
  3. HYDROMORPHONE HCL [Suspect]
     Dosage: 4 MG BID ORAL
     Route: 048
     Dates: start: 20051101, end: 20051108
  4. NOVALGIN [Concomitant]
  5. LORAZEPAM [Concomitant]
  6. TORSEMIDE [Concomitant]
  7. MOXONIDINE [Concomitant]
  8. NEBIVOLOL HCL [Concomitant]
  9. NEPRESSOL (DIHYDRALAZINE SULFATE) [Concomitant]

REACTIONS (5)
  - DISORIENTATION [None]
  - DIZZINESS [None]
  - DRUG ADMINISTRATION ERROR [None]
  - OVERDOSE [None]
  - SOMNOLENCE [None]
